FAERS Safety Report 11857820 (Version 2)
Quarter: 2016Q2

REPORT INFORMATION
  Report Type: Spontaneous
  Country: PE (occurrence: PE)
  Receive Date: 20151222
  Receipt Date: 20160622
  Transmission Date: 20160815
  Serious: Yes (Other)
  Sender: FDA-Public Use
  Company Number: PE-PFIZER INC-2015448623

PATIENT
  Age: 90 Year
  Sex: Female

DRUGS (2)
  1. COSOPT [Concomitant]
     Active Substance: DORZOLAMIDE HYDROCHLORIDE\TIMOLOL MALEATE
     Dosage: UNK, 2X/DAY
  2. XALATAN [Suspect]
     Active Substance: LATANOPROST
     Dosage: 1 DROP PER EYE
     Route: 047

REACTIONS (2)
  - Cataract [Unknown]
  - Fall [Unknown]
